FAERS Safety Report 21567977 (Version 1)
Quarter: 2022Q4

REPORT INFORMATION
  Report Type: Spontaneous
  Country: US (occurrence: None)
  Receive Date: 20221104
  Receipt Date: 20221104
  Transmission Date: 20230113
  Serious: Yes (Hospitalization)
  Sender: FDA-Public Use
  Company Number: None

PATIENT
  Age: 38 Year
  Sex: Female
  Weight: 74.84 kg

DRUGS (9)
  1. QUETIAPINE [Suspect]
     Active Substance: QUETIAPINE
     Indication: Bipolar disorder
  2. BUPROPION [Suspect]
     Active Substance: BUPROPION
     Indication: Bipolar disorder
  3. TRAZODONE [Suspect]
     Active Substance: TRAZODONE HYDROCHLORIDE
     Indication: Bipolar disorder
  4. ZOLPIDEM [Suspect]
     Active Substance: ZOLPIDEM TARTRATE
     Indication: Sleep disorder
  5. METFORMIN [Suspect]
     Active Substance: METFORMIN HYDROCHLORIDE
     Indication: Blood glucose abnormal
  6. PROGESTERONE [Suspect]
     Active Substance: PROGESTERONE
     Indication: Pregnancy
  7. DOXYLAMINE [Suspect]
     Active Substance: DOXYLAMINE
     Indication: Pregnancy
  8. AMOXICILLIN [Suspect]
     Active Substance: AMOXICILLIN
     Indication: Urinary tract infection
  9. NIFEDIPINE [Suspect]
     Active Substance: NIFEDIPINE
     Indication: Premature labour

REACTIONS (4)
  - Premature labour [None]
  - Maternal exposure timing unspecified [None]
  - Maternal drugs affecting foetus [None]
  - Unevaluable event [None]

NARRATIVE: CASE EVENT DATE: 20210707
